FAERS Safety Report 6419939-0 (Version None)
Quarter: 2009Q4

REPORT INFORMATION
  Report Type: 
  Country: None (occurrence: None)
  Receive Date: 20091029
  Receipt Date: 20091020
  Transmission Date: 20100525
  Serious: Yes (Life-Threatening, Hospitalization)
  Sender: FDA-Public Use
  Company Number: US-ELI_LILLY_AND_COMPANY-US200909007201

PATIENT
  Sex: Female
  Weight: 84.807 kg

DRUGS (9)
  1. PEMETREXED [Suspect]
     Indication: NON-SMALL CELL LUNG CANCER
     Dosage: UNK, UNK
     Dates: start: 20090807
  2. BEVACIZUMAB [Suspect]
     Indication: NON-SMALL CELL LUNG CANCER
     Dosage: 15 MG/KG, OTHER
     Route: 042
     Dates: start: 20090807, end: 20090828
  3. CISPLATIN [Suspect]
     Indication: NON-SMALL CELL LUNG CANCER
     Dosage: 75 D/F, OTHER
     Route: 042
     Dates: start: 20090807, end: 20090825
  4. ARIXTRA [Concomitant]
     Indication: PULMONARY EMBOLISM
     Dosage: 7.5 MG, DAILY (1/D)
     Route: 058
     Dates: start: 20090916, end: 20090922
  5. SYNTHROID [Concomitant]
     Dosage: 150 UG, DAILY (1/D)
  6. FOLIC ACID [Concomitant]
     Dosage: UNK, DAILY (1/D)
  7. DESMOPRESSIN ACETATE [Concomitant]
     Dosage: UNK, DAILY (1/D)
  8. DECADRON [Concomitant]
     Dosage: UNK, DAILY (1/D)
  9. VITAMIN B-12 [Concomitant]
     Dates: start: 20090731

REACTIONS (2)
  - INTRA-ABDOMINAL HAEMATOMA [None]
  - PULMONARY EMBOLISM [None]
